FAERS Safety Report 7553514-X (Version None)
Quarter: 2011Q2

REPORT INFORMATION
  Report Type: 
  Country: None (occurrence: None)
  Receive Date: 20110617
  Receipt Date: 20110607
  Transmission Date: 20111010
  Serious: Yes (Other)
  Sender: FDA-Public Use
  Company Number: US-BAYER-2011-045293

PATIENT
  Sex: Female

DRUGS (2)
  1. INTERFERON BETA-1B [Suspect]
     Indication: RELAPSING-REMITTING MULTIPLE SCLEROSIS
     Dosage: 4 MIU, QOD
     Route: 058
     Dates: start: 20110506
  2. INTERFERON BETA-1B [Suspect]
     Dosage: 6 MIU, QOD

REACTIONS (7)
  - MUSCULAR WEAKNESS [None]
  - NAUSEA [None]
  - MULTIPLE SCLEROSIS [None]
  - PAIN [None]
  - STRESS [None]
  - ASTHENIA [None]
  - HEADACHE [None]
